FAERS Safety Report 18846829 (Version 1)
Quarter: 2021Q1

REPORT INFORMATION
  Report Type: Report from Study
  Country: US (occurrence: US)
  Receive Date: 20210203
  Receipt Date: 20210203
  Transmission Date: 20210419
  Serious: No
  Sender: FDA-Public Use
  Company Number: US-EXELIXIS-CABO-20030851

PATIENT
  Age: 56 Year
  Sex: Male
  Weight: 81.63 kg

DRUGS (14)
  1. OXYCONTIN [Concomitant]
     Active Substance: OXYCODONE HYDROCHLORIDE
  2. TRAZODONE [Concomitant]
     Active Substance: TRAZODONE HYDROCHLORIDE
  3. CABOMETYX [Suspect]
     Active Substance: CABOZANTINIB S-MALATE
     Dosage: 40 MG (1 TABLET DAILY ON MONDAY, THURSDAY, FRIDAY AND OFF ON WEEKENDS)
     Route: 048
     Dates: start: 20200622
  4. TRAMADOL. [Concomitant]
     Active Substance: TRAMADOL
  5. TAMSULOSIN [Concomitant]
     Active Substance: TAMSULOSIN
  6. SERTRALINE [Concomitant]
     Active Substance: SERTRALINE HYDROCHLORIDE
  7. LEVOCETIRIZINE [Concomitant]
     Active Substance: LEVOCETIRIZINE
  8. ATORVASTATIN [Concomitant]
     Active Substance: ATORVASTATIN
  9. CABOMETYX [Suspect]
     Active Substance: CABOZANTINIB S-MALATE
     Indication: LUNG CARCINOMA CELL TYPE UNSPECIFIED STAGE IV
     Dosage: 40 MG, QD
     Route: 048
     Dates: start: 20200225, end: 202006
  10. ASPIRIN. [Concomitant]
     Active Substance: ASPIRIN
  11. PERCOCET [Concomitant]
     Active Substance: ACETAMINOPHEN\OXYCODONE HYDROCHLORIDE
  12. METOPROLOL. [Concomitant]
     Active Substance: METOPROLOL
  13. ISOSORBIDE. [Concomitant]
     Active Substance: ISOSORBIDE
  14. WARFARIN [Concomitant]
     Active Substance: WARFARIN

REACTIONS (5)
  - Inappropriate schedule of product administration [Unknown]
  - Off label use [Unknown]
  - Diarrhoea [Recovered/Resolved]
  - Asthenia [Recovered/Resolved]
  - Pain in extremity [Unknown]

NARRATIVE: CASE EVENT DATE: 20200614
